FAERS Safety Report 15776812 (Version 4)
Quarter: 2019Q1

REPORT INFORMATION
  Report Type: Spontaneous
  Country: US (occurrence: US)
  Receive Date: 20181231
  Receipt Date: 20190214
  Transmission Date: 20190417
  Serious: No
  Sender: FDA-Public Use
  Company Number: US-PFIZER INC-2018526614

PATIENT
  Age: 56 Year
  Sex: Male
  Weight: 107.94 kg

DRUGS (2)
  1. EUCRISA [Suspect]
     Active Substance: CRISABOROLE
     Dosage: UNK, 2X/DAY (APPLIES TO SKIN TWICE DAILY)
     Dates: start: 2016
  2. ADVIL [Concomitant]
     Active Substance: IBUPROFEN
     Indication: BACK PAIN
     Dosage: UNK (200MG WHEN WAKE 800MG AT 1:00PM)
     Dates: start: 2008

REACTIONS (5)
  - Condition aggravated [Not Recovered/Not Resolved]
  - Poor quality product administered [Unknown]
  - Product formulation issue [Unknown]
  - Rash macular [Not Recovered/Not Resolved]
  - Application site pain [Unknown]

NARRATIVE: CASE EVENT DATE: 201812
